FAERS Safety Report 4786621-5 (Version None)
Quarter: 2005Q3

REPORT INFORMATION
  Report Type: 
  Country: None (occurrence: None)
  Receive Date: 20050927
  Receipt Date: 20050627
  Transmission Date: 20060218
  Serious: No
  Sender: FDA-Public Use
  Company Number: USA0506101390

PATIENT
  Age: 8 Year
  Sex: Male
  Weight: 23 kg

DRUGS (2)
  1. STRATTERA [Suspect]
     Indication: ATTENTION DEFICIT/HYPERACTIVITY DISORDER
     Dosage: 2.2 MG/KG DAY
     Dates: start: 20041201, end: 20050501
  2. FOCALIN [Concomitant]

REACTIONS (1)
  - PRESCRIBED OVERDOSE [None]
